FAERS Safety Report 9723015 (Version 1)
Quarter: 2013Q4

REPORT INFORMATION
  Report Type: Spontaneous
  Country: TW (occurrence: None)
  Receive Date: 20131126
  Receipt Date: 20131126
  Transmission Date: 20140711
  Serious: Yes (Death, Life-Threatening, Hospitalization)
  Sender: FDA-Public Use
  Company Number: DAV-AE-PYR-13-06

PATIENT
  Age: 82 Year
  Sex: Male

DRUGS (4)
  1. PYRAZINAMIDE [Suspect]
     Indication: PULMONARY TUBERCULOSIS
  2. ISONIAZID [Concomitant]
  3. ETHAMBUTOL [Concomitant]
  4. RIFAMPICIN [Concomitant]

REACTIONS (4)
  - Drug reaction with eosinophilia and systemic symptoms [None]
  - Pneumonia [None]
  - Respiratory failure [None]
  - Multi-organ failure [None]
